FAERS Safety Report 21986512 (Version 2)
Quarter: 2023Q2

REPORT INFORMATION
  Report Type: Spontaneous
  Country: US (occurrence: US)
  Receive Date: 20230213
  Receipt Date: 20230505
  Transmission Date: 20230721
  Serious: No
  Sender: FDA-Public Use
  Company Number: US-BRISTOL-MYERS SQUIBB COMPANY-2023-020866

PATIENT
  Age: 83 Year
  Sex: Female
  Weight: 59 kg

DRUGS (1)
  1. REVLIMID [Suspect]
     Active Substance: LENALIDOMIDE
     Indication: Myelodysplastic syndrome
     Dosage: FREQ: DAILY FOR 21 DAYS, 3W, 1W OFF
     Route: 048
     Dates: start: 20230101

REACTIONS (2)
  - Diarrhoea [Unknown]
  - Abdominal pain upper [Unknown]
